FAERS Safety Report 5021341-3 (Version None)
Quarter: 2006Q2

REPORT INFORMATION
  Report Type: 
  Country: None (occurrence: None)
  Receive Date: 20060608
  Receipt Date: 20050831
  Transmission Date: 20061013
  Serious: No
  Sender: FDA-Public Use
  Company Number: US-BRISTOL-MYERS SQUIBB COMPANY-13096367

PATIENT
  Age: 81 Year
  Sex: Male
  Weight: 82 kg

DRUGS (8)
  1. SINEMET [Suspect]
     Indication: TREMOR
     Route: 048
  2. CLONAZEPAM [Concomitant]
  3. CELLCEPT [Concomitant]
  4. PRIMIDONE [Concomitant]
  5. DAPSONE [Concomitant]
  6. RESTASIS [Concomitant]
  7. ASPIRIN [Concomitant]
  8. MULTI-VITAMIN [Concomitant]

REACTIONS (1)
  - TREMOR [None]
